FAERS Safety Report 16153259 (Version 6)
Quarter: 2019Q3

REPORT INFORMATION
  Report Type: Report from Study
  Country: CA (occurrence: CA)
  Receive Date: 20190403
  Receipt Date: 20190919
  Transmission Date: 20191004
  Serious: Yes (Hospitalization, Other)
  Sender: FDA-Public Use
  Company Number: CA-ROCHE-2160307

PATIENT
  Age: 64 Year
  Sex: Female
  Weight: 67 kg

DRUGS (10)
  1. ESOMEPRAZOLE. [Concomitant]
     Active Substance: ESOMEPRAZOLE MAGNESIUM
  2. NABUMETONE. [Concomitant]
     Active Substance: NABUMETONE
  3. ACTEMRA [Suspect]
     Active Substance: TOCILIZUMAB
     Indication: RHEUMATOID ARTHRITIS
     Route: 042
     Dates: start: 20180724
  4. ACTEMRA [Suspect]
     Active Substance: TOCILIZUMAB
     Indication: RHEUMATOID ARTHRITIS
     Route: 058
     Dates: start: 20170405, end: 2018
  5. ACTEMRA [Suspect]
     Active Substance: TOCILIZUMAB
     Indication: PRODUCT USED FOR UNKNOWN INDICATION
     Route: 065
     Dates: start: 20170405, end: 2018
  6. TURMERIC [CURCUMA LONGA] [Concomitant]
  7. AVAMYS [Concomitant]
     Active Substance: FLUTICASONE FUROATE
  8. DILTIAZEM. [Concomitant]
     Active Substance: DILTIAZEM
  9. CRESTOR [Concomitant]
     Active Substance: ROSUVASTATIN CALCIUM
  10. CETIRIZINE [Concomitant]
     Active Substance: CETIRIZINE HYDROCHLORIDE

REACTIONS (17)
  - Ill-defined disorder [Unknown]
  - Dysstasia [Unknown]
  - Blood pressure increased [Unknown]
  - Oedema peripheral [Unknown]
  - Localised infection [Recovered/Resolved]
  - Haematoma [Recovered/Resolved]
  - Pain in extremity [Unknown]
  - Lymph gland infection [Recovered/Resolved]
  - Restless legs syndrome [Unknown]
  - Oxygen saturation decreased [Unknown]
  - Blood pressure systolic abnormal [Unknown]
  - Weight decreased [Unknown]
  - Inflammatory bowel disease [Not Recovered/Not Resolved]
  - Vein rupture [Unknown]
  - Feeding disorder [Unknown]
  - Blood pressure diastolic increased [Unknown]
  - Blood pressure systolic increased [Unknown]

NARRATIVE: CASE EVENT DATE: 2018
